FAERS Safety Report 10265837 (Version 4)
Quarter: 2014Q3

REPORT INFORMATION
  Report Type: Spontaneous
  Country: JP (occurrence: JP)
  Receive Date: 20140627
  Receipt Date: 20140915
  Transmission Date: 20150326
  Serious: Yes (Death, Hospitalization, Other)
  Sender: FDA-Public Use
  Company Number: JP-AMGEN-JPNSP2014048397

PATIENT
  Age: 8 Decade
  Sex: Male
  Weight: 63.8 kg

DRUGS (17)
  1. CALCIUM LEVOFOLINATE [Concomitant]
     Active Substance: LEVOLEUCOVORIN CALCIUM
     Indication: METASTASES TO LIVER
  2. MINOMYCIN [Concomitant]
     Active Substance: MINOCYCLINE HYDROCHLORIDE
     Dosage: 1 DF, BID
     Route: 048
     Dates: end: 20140530
  3. VECTIBIX [Suspect]
     Active Substance: PANITUMUMAB
     Indication: RECTAL CANCER
     Dosage: 376 MG, Q2WEEKS
     Route: 041
     Dates: start: 20140313, end: 20140508
  4. TWYNSTA [Concomitant]
     Active Substance: AMLODIPINE BESYLATE\TELMISARTAN
     Dosage: 1 DF, QD
     Route: 048
     Dates: end: 20140618
  5. FLUOROURACIL. [Concomitant]
     Active Substance: FLUOROURACIL
     Indication: METASTASES TO LIVER
     Dosage: UNK
     Route: 042
     Dates: start: 20140313, end: 20140529
  6. CALCIUM LEVOFOLINATE [Concomitant]
     Active Substance: LEVOLEUCOVORIN CALCIUM
     Indication: RECTAL CANCER
     Dosage: UNK
     Route: 041
     Dates: start: 20140128, end: 20140529
  7. MAGLAX [Concomitant]
     Active Substance: MAGNESIUM OXIDE
     Dosage: 2 DF, TID
     Route: 048
     Dates: end: 20140618
  8. FLUOROURACIL. [Concomitant]
     Active Substance: FLUOROURACIL
     Indication: RECTAL CANCER
     Dosage: UNK
     Route: 042
     Dates: start: 20140128, end: 20140213
  9. PL [Concomitant]
     Active Substance: ACETAMINOPHEN\CAFFEINE\PROMETHAZINE\SALICYLAMIDE
     Dosage: 2 DF, BID
     Route: 048
     Dates: end: 20140618
  10. VECTIBIX [Suspect]
     Active Substance: PANITUMUMAB
     Indication: METASTASES TO LIVER
     Dosage: 376 MG, Q2WEEKS
     Route: 041
     Dates: start: 20140213, end: 20140227
  11. ISALON [Concomitant]
     Active Substance: UNSPECIFIED INGREDIENT
     Dosage: 1 DF, BID
     Route: 048
     Dates: end: 20140618
  12. OXALIPLATIN. [Concomitant]
     Active Substance: OXALIPLATIN
     Indication: RECTAL CANCER
  13. AMLODIPINE [Concomitant]
     Active Substance: AMLODIPINE BESYLATE
     Dosage: 1 DF, QD
     Route: 048
     Dates: end: 20140618
  14. VECTIBIX [Suspect]
     Active Substance: PANITUMUMAB
     Dosage: 376 MG, Q2WEEKS
     Route: 041
     Dates: start: 20140529, end: 20140529
  15. OXALIPLATIN. [Concomitant]
     Active Substance: OXALIPLATIN
     Indication: METASTASES TO LIVER
     Dosage: UNK
     Route: 041
     Dates: start: 20140128, end: 20140529
  16. NEXIUM [Concomitant]
     Active Substance: ESOMEPRAZOLE MAGNESIUM
     Dosage: 1 DF, QD
     Route: 048
     Dates: end: 20140618
  17. MEDICON                            /00048102/ [Concomitant]
     Dosage: 1 DF, QID
     Route: 048
     Dates: end: 20140618

REACTIONS (2)
  - Gastric ulcer [Recovered/Resolved]
  - Interstitial lung disease [Fatal]

NARRATIVE: CASE EVENT DATE: 20140228
